FAERS Safety Report 23450547 (Version 1)
Quarter: 2024Q1

REPORT INFORMATION
  Report Type: Spontaneous
  Country: AU (occurrence: AU)
  Receive Date: 20240129
  Receipt Date: 20240129
  Transmission Date: 20240410
  Serious: Yes (Hospitalization, Other)
  Sender: FDA-Public Use
  Company Number: AU-MLMSERVICE-2024011147696001

PATIENT
  Age: 70 Year
  Sex: Male

DRUGS (6)
  1. CARBOPLATIN [Suspect]
     Active Substance: CARBOPLATIN
     Indication: Thymic carcinoma
     Dosage: REDUCED-DOSE
     Dates: start: 202008, end: 2020
  2. ETOPOSIDE [Suspect]
     Active Substance: ETOPOSIDE
     Indication: Thymic carcinoma
     Dosage: REDUCED-DOSE
     Dates: start: 202008, end: 2020
  3. DEXTROSE [Concomitant]
     Active Substance: DEXTROSE\DEXTROSE MONOHYDRATE
     Indication: Hypoglycaemia
     Dosage: CONTINUOUS INTRAVENOUS 5% DEXTROSE
     Route: 042
     Dates: start: 2020
  4. DEXAMETHASONE [Concomitant]
     Active Substance: DEXAMETHASONE
     Indication: Pulmonary thrombosis
     Dosage: HIGH DOSES
     Dates: start: 2020
  5. CARBOPLATIN [Suspect]
     Active Substance: CARBOPLATIN
     Indication: Multiple endocrine neoplasia Type 1
     Dosage: REDUCED-DOSE
     Dates: start: 202008, end: 2020
  6. ETOPOSIDE [Suspect]
     Active Substance: ETOPOSIDE
     Indication: Carcinoid tumour
     Dosage: REDUCED-DOSE
     Dates: start: 202008, end: 2020

REACTIONS (4)
  - Hypoglycaemia [Unknown]
  - Cellulitis [Unknown]
  - Pancytopenia [Unknown]
  - Off label use [Unknown]

NARRATIVE: CASE EVENT DATE: 20200101
